FAERS Safety Report 5299969-5 (Version None)
Quarter: 2007Q2

REPORT INFORMATION
  Report Type: 
  Country: None (occurrence: None)
  Receive Date: 20070417
  Receipt Date: 20070410
  Transmission Date: 20071010
  Serious: Yes (Death, Life-Threatening)
  Sender: FDA-Public Use
  Company Number: CH-PFIZER INC-2007022489

PATIENT
  Sex: Female
  Weight: 83.1 kg

DRUGS (7)
  1. FRAGMIN [Suspect]
     Indication: THROMBOSIS PROPHYLAXIS
     Route: 058
     Dates: start: 20070302, end: 20070312
  2. FRAGMIN [Suspect]
  3. PLAVIX [Concomitant]
     Dosage: DAILY DOSE:75MG-FREQ:DAILY
     Route: 048
  4. PANTOZOL [Concomitant]
     Dosage: DAILY DOSE:40MG-FREQ:DAILY
     Route: 048
     Dates: start: 20070302
  5. COVERSUM [Concomitant]
     Dosage: DAILY DOSE:2MG-FREQ:DAILY
     Route: 048
     Dates: start: 20070302
  6. GLYBURIDE [Concomitant]
     Dosage: DAILY DOSE:5MG-FREQ:DAILY
     Route: 048
     Dates: start: 20070302
  7. ATORVASTATIN CALCIUM [Concomitant]
     Dosage: DAILY DOSE:80MG-FREQ:DAILY
     Route: 048
     Dates: start: 20070302

REACTIONS (1)
  - PULMONARY EMBOLISM [None]
